FAERS Safety Report 5236240-1 (Version None)
Quarter: 2007Q1

REPORT INFORMATION
  Report Type: 
  Country: None (occurrence: None)
  Receive Date: 20061208
  Receipt Date: 20050825
  Transmission Date: 20070707
  Serious: Yes (Other)
  Sender: FDA-Public Use
  Company Number: 2005UW08033

PATIENT
  Age: 79 Year
  Sex: Female
  Weight: 70.306 kg

DRUGS (8)
  1. CRESTOR [Suspect]
     Indication: BLOOD CHOLESTEROL INCREASED
     Dosage: 10 MG PO
     Route: 048
     Dates: start: 20050401
  2. CARDIZEM [Concomitant]
  3. ZESTRIL [Concomitant]
  4. COUMADIN [Concomitant]
  5. DIGOXIN [Concomitant]
  6. OCUVITE [Concomitant]
  7. DIOVAN [Concomitant]
  8. DETROL [Concomitant]

REACTIONS (2)
  - ERYTHEMA OF EYELID [None]
  - MUSCULOSKELETAL PAIN [None]
